FAERS Safety Report 14587248 (Version 1)
Quarter: 2018Q1

REPORT INFORMATION
  Report Type: Spontaneous
  Country: US (occurrence: US)
  Receive Date: 20180301
  Receipt Date: 20180301
  Transmission Date: 20180509
  Serious: Yes (Other)
  Sender: FDA-Public Use
  Company Number: US-BAYER-2018-034319

PATIENT
  Sex: Male

DRUGS (1)
  1. ALEVE [Suspect]
     Active Substance: NAPROXEN SODIUM
     Dosage: UNK

REACTIONS (6)
  - Obstructive airways disorder [Unknown]
  - Urticaria [None]
  - Swelling face [Unknown]
  - Pruritus [None]
  - Hypertension [Unknown]
  - Blood glucose increased [Unknown]
